FAERS Safety Report 9393694 (Version 1)
Quarter: 2013Q3

REPORT INFORMATION
  Report Type: Report from Study
  Country: US (occurrence: US)
  Receive Date: 20130710
  Receipt Date: 20130710
  Transmission Date: 20140515
  Serious: Yes (Other)
  Sender: FDA-Public Use
  Company Number: US-PFIZER INC-2013200330

PATIENT
  Age: 41 Year
  Sex: Male
  Weight: 105 kg

DRUGS (6)
  1. BLINDED CELECOXIB [Suspect]
     Indication: ADENOCARCINOMA OF COLON
     Dosage: 400 MG PO QD ON DAY 1 OF CYCLE 2 OF FOLFOX
     Route: 048
     Dates: start: 20130612
  2. BLINDED PLACEBO [Suspect]
     Indication: ADENOCARCINOMA OF COLON
     Dosage: 400 MG PO QD ON DAY 1 OF CYCLE 2 OF FOLFOX
     Route: 048
     Dates: start: 20130612
  3. FLUOROURACIL [Suspect]
     Indication: ADENOCARCINOMA OF COLON
     Dosage: 400 MG/M2 IVP ON DAY 1 FOLLOWED BY
     Route: 042
     Dates: start: 20130612
  4. FLUOROURACIL [Suspect]
     Dosage: 2400MG/M2 OVER 46-48 HOURS ON DAY 1
     Route: 042
  5. ELOXATIN [Suspect]
     Indication: ADENOCARCINOMA OF COLON
     Dosage: 85 MG/M2 OVER 2 HOURS ON DAY 1
     Route: 042
     Dates: start: 20130612
  6. LEUCOVORIN CALCIUM [Suspect]
     Indication: ADENOCARCINOMA OF COLON
     Dosage: 400MG/M2 OVER 2 HOURS ON DAY 1
     Route: 042
     Dates: start: 20130612

REACTIONS (4)
  - Fall [Recovered/Resolved]
  - Laceration [Recovered/Resolved]
  - Hypersensitivity [Recovered/Resolved]
  - Hypotension [Recovered/Resolved]
